FAERS Safety Report 17533561 (Version 1)
Quarter: 2020Q1

REPORT INFORMATION
  Report Type: Spontaneous
  Country: US (occurrence: US)
  Receive Date: 20200312
  Receipt Date: 20200312
  Transmission Date: 20200409
  Serious: No
  Sender: FDA-Public Use
  Company Number: None

PATIENT
  Sex: Male

DRUGS (2)
  1. ATORVASTATIN [Suspect]
     Active Substance: ATORVASTATIN
  2. ZETIA [Suspect]
     Active Substance: EZETIMIBE

REACTIONS (3)
  - Arthralgia [None]
  - Headache [None]
  - Fatigue [None]
